FAERS Safety Report 10861715 (Version 1)
Quarter: 2015Q1

REPORT INFORMATION
  Report Type: Spontaneous
  Country: US (occurrence: US)
  Receive Date: 20150224
  Receipt Date: 20150224
  Transmission Date: 20150721
  Serious: No
  Sender: FDA-Public Use
  Company Number: US-PFIZER INC-2015064035

PATIENT
  Sex: Female

DRUGS (3)
  1. SYNTHROID [Suspect]
     Active Substance: LEVOTHYROXINE SODIUM
     Dosage: UNK
  2. KLONOPIN [Suspect]
     Active Substance: CLONAZEPAM
     Dosage: UNK
  3. EFFEXOR XR [Suspect]
     Active Substance: VENLAFAXINE HYDROCHLORIDE
     Dosage: 75 MG, 2X/DAY

REACTIONS (3)
  - Malaise [Unknown]
  - Drug withdrawal syndrome [Not Recovered/Not Resolved]
  - Feeling hot [Not Recovered/Not Resolved]
